FAERS Safety Report 10030666 (Version 2)
Quarter: 2014Q1

REPORT INFORMATION
  Report Type: Spontaneous
  Country: None (occurrence: US)
  Receive Date: 20140323
  Receipt Date: 20140323
  Transmission Date: 20141002
  Serious: No
  Sender: FDA-Public Use
  Company Number: US-ALLERGAN-1319589US

PATIENT
  Age: 62 Year
  Sex: Female

DRUGS (5)
  1. LATISSE 0.03% [Suspect]
     Indication: GROWTH OF EYELASHES
     Dosage: UNK
     Route: 061
  2. LATISSE 0.03% [Suspect]
     Dosage: UNK
     Route: 061
  3. MULTIVITAMINS [Concomitant]
     Indication: SUPPLEMENTATION THERAPY
     Dosage: UNK
  4. LUBRICATING EYE DROPS NOS [Concomitant]
     Indication: DRY EYE
     Dosage: UNK
  5. LUBRICATING EYE DROPS NOS [Concomitant]
     Indication: OCULAR HYPERAEMIA

REACTIONS (5)
  - Incorrect dose administered [Unknown]
  - Madarosis [Unknown]
  - Madarosis [Unknown]
  - Trichorrhexis [Unknown]
  - Drug ineffective [Unknown]
